FAERS Safety Report 19240000 (Version 2)
Quarter: 2025Q4

REPORT INFORMATION
  Report Type: Spontaneous
  Country: EU (occurrence: EU)
  Receive Date: 20210511
  Receipt Date: 20251113
  Transmission Date: 20260117
  Serious: Yes (Hospitalization, Other)
  Sender: BIOGEN
  Company Number: EU-BIOGEN-2021BI01008796

PATIENT
  Age: 21 Year
  Sex: Female

DRUGS (3)
  1. TECFIDERA [Suspect]
     Active Substance: DIMETHYL FUMARATE
     Indication: Product used for unknown indication
  2. REBIF [Suspect]
     Active Substance: INTERFERON BETA-1A
     Indication: Multiple sclerosis
     Dates: start: 20210111, end: 20210416
  3. DROSPIRENONE\ETHINYL ESTRADIOL [Concomitant]
     Active Substance: DROSPIRENONE\ETHINYL ESTRADIOL
     Indication: Contraception

REACTIONS (2)
  - Pulmonary embolism [Recovered/Resolved]
  - Embolism [Unknown]

NARRATIVE: CASE EVENT DATE: 20210101
